FAERS Safety Report 10025966 (Version 1)
Quarter: 2014Q1

REPORT INFORMATION
  Report Type: Spontaneous
  Country: ES (occurrence: None)
  Receive Date: 20140318
  Receipt Date: 20140318
  Transmission Date: 20141002
  Serious: Yes (Death)
  Sender: FDA-Public Use
  Company Number: B0976635A

PATIENT
  Sex: 0

DRUGS (2)
  1. MARAVIROC [Suspect]
     Indication: HIV INFECTION
  2. DARUNAVIR PLUS RITONAVIR [Suspect]
     Indication: HIV INFECTION

REACTIONS (1)
  - Death [None]
